FAERS Safety Report 5334766-3 (Version None)
Quarter: 2007Q2

REPORT INFORMATION
  Report Type: 
  Country: None (occurrence: None)
  Receive Date: 20070525
  Receipt Date: 20070514
  Transmission Date: 20071010
  Serious: Yes (Other)
  Sender: FDA-Public Use
  Company Number: JP-ROCHE-487058

PATIENT
  Age: 7 Month
  Sex: Male
  Weight: 9 kg

DRUGS (6)
  1. TAMIFLU [Suspect]
     Dosage: FORM:DRY SYRUP
     Route: 048
     Dates: start: 20070216, end: 20070216
  2. TAMIFLU [Suspect]
     Route: 048
     Dates: start: 20070217, end: 20070217
  3. TAMIFLU [Suspect]
     Route: 048
     Dates: start: 20070218, end: 20070218
  4. PERIACTIN [Concomitant]
     Route: 048
     Dates: start: 20070216, end: 20070226
  5. MUCODYNE [Concomitant]
     Dosage: FORM:FINE GRANULE.
     Route: 048
     Dates: start: 20070216, end: 20070226
  6. ASVERIN [Concomitant]
     Route: 048
     Dates: start: 20070216, end: 20070226

REACTIONS (1)
  - LIVER DISORDER [None]
